FAERS Safety Report 24957696 (Version 2)
Quarter: 2025Q1

REPORT INFORMATION
  Report Type: Spontaneous
  Country: CA (occurrence: CA)
  Receive Date: 20250212
  Receipt Date: 20250218
  Transmission Date: 20250409
  Serious: Yes (Hospitalization)
  Sender: CSL BEHRING
  Company Number: CA-BEH-2025195088

PATIENT
  Sex: Female

DRUGS (3)
  1. HUMAN IMMUNOGLOBULIN G [Suspect]
     Active Substance: HUMAN IMMUNOGLOBULIN G
     Indication: Chronic inflammatory demyelinating polyradiculoneuropathy
     Route: 042
  2. COMIRNATY (TOZINAMERAN) [Suspect]
     Active Substance: TOZINAMERAN
     Indication: COVID-19 immunisation
     Route: 030
  3. COMIRNATY (TOZINAMERAN) [Suspect]
     Active Substance: TOZINAMERAN
     Route: 065

REACTIONS (12)
  - Abdominal pain [Unknown]
  - Chest pain [Unknown]
  - Dizziness [Unknown]
  - Drug interaction [Unknown]
  - Dyspnoea [Unknown]
  - Gait inability [Unknown]
  - Headache [Unknown]
  - Hypertension [Unknown]
  - Myalgia [Unknown]
  - Pain [Unknown]
  - Pyrexia [Unknown]
  - Rash [Unknown]
